FAERS Safety Report 6219748-1 (Version None)
Quarter: 2009Q2

REPORT INFORMATION
  Report Type: 
  Country: None (occurrence: None)
  Receive Date: 20090609
  Receipt Date: 20090526
  Transmission Date: 20091009
  Serious: Yes (Hospitalization, Congenital Anomaly)
  Sender: FDA-Public Use
  Company Number: A0680433A

PATIENT
  Sex: Male
  Weight: 2.8 kg

DRUGS (6)
  1. PAXIL [Suspect]
     Indication: ANXIETY
     Dosage: 25MG PER DAY
     Dates: start: 20040801, end: 20050101
  2. PAXIL CR [Suspect]
     Indication: DEPRESSION
     Dosage: 25MG PER DAY
     Dates: start: 20040801, end: 20050101
  3. PAROXETINE HCL [Suspect]
     Indication: DEPRESSION
     Dosage: 25MG PER DAY
     Dates: start: 20040801, end: 20050101
  4. ZOLOFT [Concomitant]
     Dates: start: 20050101
  5. LEXAPRO [Concomitant]
  6. UNKNOWN MEDICATION TO TREAT EMESIS [Concomitant]

REACTIONS (7)
  - ARRHYTHMIA [None]
  - CARDIAC MURMUR [None]
  - DRUG EXPOSURE DURING PREGNANCY [None]
  - ELECTROCARDIOGRAM QT PROLONGED [None]
  - HEART DISEASE CONGENITAL [None]
  - RIGHT ATRIAL DILATATION [None]
  - RIGHT VENTRICULAR HYPERTROPHY [None]
